FAERS Safety Report 20659855 (Version 10)
Quarter: 2022Q3

REPORT INFORMATION
  Report Type: Spontaneous
  Country: IE (occurrence: IE)
  Receive Date: 20220331
  Receipt Date: 20220728
  Transmission Date: 20221027
  Serious: Yes (Other)
  Sender: FDA-Public Use
  Company Number: IE-PFIZER INC-202200025716

PATIENT
  Age: 1 Year
  Sex: Male

DRUGS (6)
  1. GENOTROPIN [Suspect]
     Active Substance: SOMATROPIN
     Indication: Growth hormone deficiency
     Dosage: 0.2 MG
  2. GENOTROPIN [Suspect]
     Active Substance: SOMATROPIN
     Dosage: 0.2 MG, ALTERNATE DAY
  3. GENOTROPIN [Suspect]
     Active Substance: SOMATROPIN
     Dosage: 0.3 MG, ALTERNATE DAY
  4. GENOTROPIN [Suspect]
     Active Substance: SOMATROPIN
     Dosage: 0.2 MG
  5. GENOTROPIN [Suspect]
     Active Substance: SOMATROPIN
     Dosage: 2.5 MG
  6. GENOTROPIN [Suspect]
     Active Substance: SOMATROPIN
     Dosage: 0.25 MG

REACTIONS (10)
  - Blood glucose decreased [Unknown]
  - Decreased appetite [Unknown]
  - Gastroenteritis viral [Unknown]
  - Dermatitis diaper [Unknown]
  - Middle insomnia [Unknown]
  - Weight increased [Unknown]
  - Energy increased [Unknown]
  - Viral infection [Unknown]
  - Constipation [Unknown]
  - Product prescribing error [Unknown]
